FAERS Safety Report 20877530 (Version 2)
Quarter: 2022Q2

REPORT INFORMATION
  Report Type: Spontaneous
  Country: HR (occurrence: HR)
  Receive Date: 20220526
  Receipt Date: 20220531
  Transmission Date: 20220721
  Serious: Yes (Hospitalization, Other)
  Sender: FDA-Public Use
  Company Number: HR-PFIZER INC-202200720917

PATIENT
  Age: 30 Year
  Sex: Male

DRUGS (18)
  1. ENBREL [Suspect]
     Active Substance: ETANERCEPT
     Indication: Product used for unknown indication
     Dosage: 50 MG, EVERY 2 WEEKS
     Route: 065
     Dates: start: 20130423
  2. ENBREL [Suspect]
     Active Substance: ETANERCEPT
     Dosage: 50 MG, WEEKLY
     Route: 058
     Dates: start: 2010, end: 20120103
  3. INDOMETHACIN [Concomitant]
     Active Substance: INDOMETHACIN
     Dosage: 25 MG, AS NEEDED
  4. INDOMETHACIN [Concomitant]
     Active Substance: INDOMETHACIN
     Dosage: 25 UNK
  5. ACETAMINOPHEN [Concomitant]
     Active Substance: ACETAMINOPHEN
     Dosage: UP TO 6 AS NEEDED
  6. CONTROLOC [Concomitant]
     Active Substance: PANTOPRAZOLE SODIUM
     Dosage: UNK
  7. LANTUS [Concomitant]
     Active Substance: INSULIN GLARGINE
     Dosage: 32
     Route: 058
  8. LANTUS [Concomitant]
     Active Substance: INSULIN GLARGINE
     Dosage: UNK
     Route: 058
  9. METHOTREXATE [Concomitant]
     Active Substance: METHOTREXATE
     Dosage: 5 MG, WEEKLY
  10. METHOTREXATE [Concomitant]
     Active Substance: METHOTREXATE
     Dosage: 7.5 MG, WEEKLY
  11. Folacin [Concomitant]
     Dosage: 3X1 ONCE A WEEK
  12. Folacin [Concomitant]
     Dosage: 2X1 ONCE A WEEK
  13. SULFASALAZINE [Concomitant]
     Active Substance: SULFASALAZINE
     Dosage: 2X500 MG TABLETS FOR 1 MONTH THEN EXCLUDED
     Dates: start: 2010
  14. SULFASALAZINE [Concomitant]
     Active Substance: SULFASALAZINE
     Dosage: 500 MG, 2X/DAY
     Dates: start: 20080609
  15. SULFASALAZINE [Concomitant]
     Active Substance: SULFASALAZINE
     Dosage: 500 MG, 3X/DAY
     Dates: start: 20081015
  16. SULFASALAZINE [Concomitant]
     Active Substance: SULFASALAZINE
     Dosage: 500 MG, 4X/DAY
     Dates: start: 20100120
  17. SULFASALAZINE [Concomitant]
     Active Substance: SULFASALAZINE
     Dosage: 500 MG, 2 TABLETS 2X/DAY
     Dates: start: 20100421
  18. APIDRA [Concomitant]
     Active Substance: INSULIN GLULISINE
     Dosage: 16-18 SUBCUTANEOUS INJECTION
     Route: 058

REACTIONS (10)
  - Diabetic nephropathy [Unknown]
  - Glycosuria [Unknown]
  - Proteinuria [Unknown]
  - Scrotal swelling [Recovered/Resolved]
  - Streptococcus test positive [Recovered/Resolved]
  - Off label use [Unknown]
  - Pain [Unknown]
  - Scrotal abscess [Recovered/Resolved]
  - Respiratory tract infection [Unknown]
  - Urinary tract infection [Unknown]

NARRATIVE: CASE EVENT DATE: 20101021
